FAERS Safety Report 8907342 (Version 2)
Quarter: 2013Q2

REPORT INFORMATION
  Report Type: Spontaneous
  Country: AR (occurrence: AR)
  Receive Date: 20121114
  Receipt Date: 20130603
  Transmission Date: 20140414
  Serious: Yes (Hospitalization, Other)
  Sender: FDA-Public Use
  Company Number: AR-RANBAXY-2012RR-61911

PATIENT
  Age: 24 Year
  Sex: Female

DRUGS (1)
  1. AMOXICILLIN [Suspect]
     Indication: PHARYNGITIS
     Dosage: 1.500 MG/DAY
     Route: 065
     Dates: start: 19971105, end: 19971114

REACTIONS (1)
  - Cholestasis [Recovered/Resolved]
